FAERS Safety Report 5697628-8 (Version None)
Quarter: 2008Q2

REPORT INFORMATION
  Report Type: 
  Country: None (occurrence: None)
  Receive Date: 20080408
  Receipt Date: 20080331
  Transmission Date: 20081010
  Serious: Yes (Disabling)
  Sender: FDA-Public Use
  Company Number: US-ROCHE-555920

PATIENT
  Age: 67 Year
  Sex: Female

DRUGS (3)
  1. BONIVA [Suspect]
     Indication: DRUG USE FOR UNKNOWN INDICATION
     Route: 065
     Dates: start: 20070801, end: 20071001
  2. BONIVA [Suspect]
     Route: 065
     Dates: start: 20080201
  3. THYROID TAB [Concomitant]
     Indication: THYROID DISORDER

REACTIONS (2)
  - GAIT DISTURBANCE [None]
  - MOVEMENT DISORDER [None]
